FAERS Safety Report 19313306 (Version 1)
Quarter: 2021Q2

REPORT INFORMATION
  Report Type: Report from Study
  Country: US (occurrence: US)
  Receive Date: 20210527
  Receipt Date: 20210527
  Transmission Date: 20210717
  Serious: Yes (Other)
  Sender: FDA-Public Use
  Company Number: US-AUROBINDO-AUR-APL-2021-021063

PATIENT

DRUGS (4)
  1. CARBOPLATIN. [Suspect]
     Active Substance: CARBOPLATIN
     Indication: NEUROBLASTOMA
     Dosage: 375 MILLIGRAM, ONCE A DAY(DAILY DOSE:375MG?FREQ:FOR 4 DAYS )
     Route: 042
  2. MELPHALAN. [Suspect]
     Active Substance: MELPHALAN
     Indication: NEUROBLASTOMA
     Dosage: 70 MILLIGRAM, ONCE A DAY
     Route: 042
  3. ETOPOSIDE PHOSPHATE [Suspect]
     Active Substance: ETOPOSIDE PHOSPHATE
     Indication: NEUROBLASTOMA
     Dosage: 300 MG/M2(DAILY DOSE:300MG/M*2?FREQ:FOR 4 DAYS )
     Route: 042
  4. IODINE (123 I) [Suspect]
     Active Substance: IODINE I-123
     Indication: NEUROBLASTOMA
     Dosage: UNK(TEXT:15 MCI/KG/DAY?FREQ:FOR 1 DAY )
     Route: 042

REACTIONS (11)
  - Acute respiratory distress syndrome [Unknown]
  - Hepatomegaly [Unknown]
  - Mucosal inflammation [Unknown]
  - Venoocclusive disease [Unknown]
  - Epistaxis [Unknown]
  - Gastrointestinal haemorrhage [Unknown]
  - Aspartate aminotransferase increased [Unknown]
  - Arrhythmia [Unknown]
  - Blood bilirubin increased [Unknown]
  - Weight increased [Unknown]
  - Renal failure [Unknown]
